FAERS Safety Report 26079690 (Version 1)
Quarter: 2025Q4

REPORT INFORMATION
  Report Type: Spontaneous
  Country: JP (occurrence: JP)
  Receive Date: 20251123
  Receipt Date: 20251123
  Transmission Date: 20260118
  Serious: Yes (Death)
  Sender: ASTELLAS
  Company Number: JP-ASTELLAS-2025-AER-036785

PATIENT
  Age: 75 Year
  Sex: Male

DRUGS (1)
  1. PADCEV [Suspect]
     Active Substance: ENFORTUMAB VEDOTIN-EJFV
     Indication: Transitional cell carcinoma
     Dosage: ADMINISTRATION FOR THREE WEEKS AND INTERRUPTION FOR A WEEK
     Route: 042
     Dates: start: 20250508, end: 20250508

REACTIONS (1)
  - Death [Fatal]
